FAERS Safety Report 23590737 (Version 1)
Quarter: 2024Q1

REPORT INFORMATION
  Report Type: Spontaneous
  Country: IT (occurrence: None)
  Receive Date: 20240304
  Receipt Date: 20240304
  Transmission Date: 20240410
  Serious: Yes (Other)
  Sender: FDA-Public Use
  Company Number: IT-INFO-20240048

PATIENT
  Age: 46 Year
  Sex: Male

DRUGS (16)
  1. LEVOFLOXACIN [Interacting]
     Active Substance: LEVOFLOXACIN
     Indication: Pneumonia
  2. MYCOPHENOLATE MOFETIL [Interacting]
     Active Substance: MYCOPHENOLATE MOFETIL
     Indication: Immunosuppressant drug therapy
  3. EVEROLIMUS [Interacting]
     Active Substance: EVEROLIMUS
     Indication: Immunosuppressant drug therapy
  4. INSULIN GLARGINE [Concomitant]
     Active Substance: INSULIN GLARGINE
     Indication: Type 1 diabetes mellitus
  5. INSULIN LISPRO [Concomitant]
     Active Substance: INSULIN LISPRO
     Indication: Type 1 diabetes mellitus
  6. CALCIUM CARBONATE [Concomitant]
     Active Substance: CALCIUM CARBONATE
     Indication: Osteoporosis
  7. CHOLECALCIFEROL [Concomitant]
     Active Substance: CHOLECALCIFEROL
     Indication: Osteoporosis
  8. SULFAMETHOXAZOLE\TRIMETHOPRIM [Interacting]
     Active Substance: SULFAMETHOXAZOLE\TRIMETHOPRIM
     Indication: Pneumonia
  9. CEPHALEXIN [Interacting]
     Active Substance: CEPHALEXIN
     Indication: Pneumonia
     Route: 048
  10. CEPHALEXIN [Interacting]
     Active Substance: CEPHALEXIN
     Indication: Pneumonia
     Route: 048
  11. OSELTAMIVIR [Concomitant]
     Active Substance: OSELTAMIVIR
     Indication: H1N1 influenza
  12. FOSFOMYCIN [Interacting]
     Active Substance: FOSFOMYCIN
     Indication: Pseudomonas infection
     Route: 040
  13. PIPERACILLIN AND TAZOBACTAM [Interacting]
     Active Substance: PIPERACILLIN SODIUM\TAZOBACTAM SODIUM
     Indication: Pseudomonas infection
     Route: 040
  14. AMIKACIN [Interacting]
     Active Substance: AMIKACIN
     Indication: Pseudomonas infection
     Route: 040
  15. MEROPENEM [Interacting]
     Active Substance: MEROPENEM
     Indication: Pseudomonas infection
     Route: 040
  16. AZITHROMYCIN [Interacting]
     Active Substance: AZITHROMYCIN
     Indication: Pseudomonas infection
     Route: 048

REACTIONS (1)
  - Drug interaction [Recovered/Resolved]
